FAERS Safety Report 21476793 (Version 1)
Quarter: 2022Q4

REPORT INFORMATION
  Report Type: Spontaneous
  Country: US (occurrence: US)
  Receive Date: 20221019
  Receipt Date: 20221019
  Transmission Date: 20230113
  Serious: No
  Sender: FDA-Public Use
  Company Number: US-GLAXOSMITHKLINE-USCH2022AMR038876

PATIENT
  Sex: Female
  Weight: 81.3 kg

DRUGS (7)
  1. FLONASE [Suspect]
     Active Substance: FLUTICASONE PROPIONATE
     Indication: Cough
     Dosage: UNK, QD
  2. FLONASE [Suspect]
     Active Substance: FLUTICASONE PROPIONATE
     Indication: Dry throat
  3. TREPROSTINIL [Suspect]
     Active Substance: TREPROSTINIL
     Indication: Pulmonary arterial hypertension
     Dosage: 48 UG, QID
     Route: 055
     Dates: start: 20220915
  4. TREPROSTINIL [Suspect]
     Active Substance: TREPROSTINIL
     Dosage: 96 UG,(48 ?G + 48 ?G) QID
     Route: 055
     Dates: start: 202209
  5. TYVASO [Suspect]
     Active Substance: TREPROSTINIL
     Indication: Pulmonary arterial hypertension
     Dosage: UNK
     Route: 055
  6. ALLEGRA [Suspect]
     Active Substance: FEXOFENADINE HYDROCHLORIDE
     Indication: Cough
     Dosage: UNK, QD
  7. ALLEGRA [Suspect]
     Active Substance: FEXOFENADINE HYDROCHLORIDE
     Indication: Dry throat

REACTIONS (2)
  - Dizziness [Unknown]
  - Product use in unapproved indication [Unknown]
